FAERS Safety Report 25826968 (Version 6)
Quarter: 2025Q4

REPORT INFORMATION
  Report Type: Spontaneous
  Country: EU (occurrence: EU)
  Receive Date: 20250920
  Receipt Date: 20251112
  Transmission Date: 20260117
  Serious: Yes (Hospitalization, Other)
  Sender: ABBVIE
  Company Number: EU-SA-2025SA276290

PATIENT
  Age: 82 Year
  Sex: Female

DRUGS (3)
  1. DEXAMETHASONE [Suspect]
     Active Substance: DEXAMETHASONE
     Indication: Product used for unknown indication
     Dosage: TIME INTERVAL: AS NECESSARY
     Route: 050
     Dates: start: 20240930, end: 20250203
  2. KYPROLIS [Suspect]
     Active Substance: CARFILZOMIB
     Indication: Product used for unknown indication
     Dosage: 92 MG (56 MG/M2 )
     Route: 065
     Dates: start: 20240930, end: 20250203
  3. SARCLISA [Suspect]
     Active Substance: ISATUXIMAB-IRFC
     Indication: Product used for unknown indication
     Dosage: 610 MG (10 MG/KG)
     Route: 065
     Dates: start: 20240930, end: 20250203

REACTIONS (2)
  - Pancreatitis acute [Unknown]
  - Off label use [Unknown]

NARRATIVE: CASE EVENT DATE: 20240930
